FAERS Safety Report 21025329 (Version 6)
Quarter: 2022Q3

REPORT INFORMATION
  Report Type: Spontaneous
  Country: DE (occurrence: DE)
  Receive Date: 20220630
  Receipt Date: 20220921
  Transmission Date: 20221026
  Serious: Yes (Hospitalization, Other)
  Sender: FDA-Public Use
  Company Number: DE-TAKEDA-2022TUS035180

PATIENT
  Age: 25 Year
  Sex: Female

DRUGS (8)
  1. MESALAMINE [Suspect]
     Active Substance: MESALAMINE
     Indication: Colitis ulcerative
     Dosage: QD
     Route: 065
  2. MOVIPREP [Suspect]
     Active Substance: ASCORBIC ACID\POLYETHYLENE GLYCOL 3350\POTASSIUM CHLORIDE\SODIUM ASCORBATE\SODIUM CHLORIDE\SODIUM SU
     Indication: Product used for unknown indication
     Route: 065
  3. ENTYVIO [Suspect]
     Active Substance: VEDOLIZUMAB
     Indication: Colitis ulcerative
     Route: 058
  4. ENTYVIO [Suspect]
     Active Substance: VEDOLIZUMAB
     Route: 042
  5. PREDNISOLONE [Suspect]
     Active Substance: PREDNISOLONE
     Indication: Product used for unknown indication
     Dosage: 25 MILLIGRAM
     Route: 065
  6. CORTISONE [Suspect]
     Active Substance: CORTISONE
     Indication: Colitis ulcerative
     Route: 065
  7. SALOFALK [Concomitant]
     Indication: Product used for unknown indication
  8. AZATHIOPRINE [Concomitant]
     Active Substance: AZATHIOPRINE
     Indication: Product used for unknown indication

REACTIONS (14)
  - Colitis ulcerative [Unknown]
  - Cholangitis sclerosing [Unknown]
  - Hepatotoxicity [Unknown]
  - Liver function test increased [Unknown]
  - COVID-19 [Unknown]
  - Skin disorder [Unknown]
  - Liver disorder [Unknown]
  - Fluid retention [Unknown]
  - Vomiting [Unknown]
  - Insomnia [Unknown]
  - Nasopharyngitis [Unknown]
  - Fatigue [Unknown]
  - Headache [Unknown]
  - Drug ineffective [Unknown]
